FAERS Safety Report 18979708 (Version 1)
Quarter: 2021Q1

REPORT INFORMATION
  Report Type: Spontaneous
  Country: US (occurrence: US)
  Receive Date: 20210305
  Receipt Date: 20210305
  Transmission Date: 20210420
  Serious: Yes (Other)
  Sender: FDA-Public Use
  Company Number: None

PATIENT
  Age: 62 Year
  Sex: Male
  Weight: 46.72 kg

DRUGS (5)
  1. ATOVASTATIN [Concomitant]
     Active Substance: ATORVASTATIN
  2. AURYVIA [Concomitant]
  3. TRIFERIC [Suspect]
     Active Substance: FERRIC PYROPHOSPHATE CITRATE
     Indication: MINERAL SUPPLEMENTATION
     Dosage: ?          QUANTITY:1PK?}25GALLS OF H2;OTHER FREQUENCY:EVERY DIALYSIS TRE;OTHER ROUTE:ADM VIA THE CENTRAL BICARB LOOPS?
     Dates: start: 20200802, end: 20201202
  4. CLONIDINE. [Concomitant]
     Active Substance: CLONIDINE
  5. METOPROLOL. [Concomitant]
     Active Substance: METOPROLOL

REACTIONS (2)
  - Thrombosis in device [None]
  - Complication associated with device [None]

NARRATIVE: CASE EVENT DATE: 20210208
